FAERS Safety Report 15586655 (Version 1)
Quarter: 2018Q4

REPORT INFORMATION
  Report Type: Report from Study
  Country: DE (occurrence: DE)
  Receive Date: 20181105
  Receipt Date: 20181105
  Transmission Date: 20190205
  Serious: Yes (Death, Other)
  Sender: FDA-Public Use
  Company Number: DE-BAYER-RCH-209236

PATIENT
  Age: 58 Year
  Sex: Female
  Weight: 54 kg

DRUGS (58)
  1. BEN-U-RON [Suspect]
     Active Substance: ACETAMINOPHEN
     Indication: PYREXIA
     Route: 054
     Dates: start: 19950117, end: 19950117
  2. ERYPO (ERYTHROPOETIN HUMAN) [Suspect]
     Active Substance: ERYTHROPOIETIN
     Indication: ANAEMIA
     Dosage: DAILY DOSE 2000 IU
     Route: 058
     Dates: start: 19950114, end: 19950114
  3. ERYPO (ERYTHROPOETIN HUMAN) [Suspect]
     Active Substance: ERYTHROPOIETIN
     Indication: ANAEMIA
     Dosage: DAILY DOSE 2000 IU
     Route: 058
     Dates: start: 19950110, end: 19950110
  4. LOPIRIN COR [Concomitant]
     Active Substance: CAPTOPRIL
     Indication: HYPERTENSION
     Dosage: 1 DF, QD
     Route: 048
     Dates: start: 19941229, end: 19941229
  5. ROHYPNOL [Suspect]
     Active Substance: FLUNITRAZEPAM
     Indication: SLEEP DISORDER
     Dosage: 1 DF, QD
     Route: 048
     Dates: start: 19950114, end: 19950123
  6. ISOPTIN [Concomitant]
     Active Substance: VERAPAMIL HYDROCHLORIDE
     Indication: ARRHYTHMIA
     Dosage: 1 DF, TID
     Route: 048
     Dates: start: 19941228, end: 19941228
  7. ISOPTIN [Concomitant]
     Active Substance: VERAPAMIL HYDROCHLORIDE
     Indication: ARRHYTHMIA
     Dosage: 1 DF, TID
     Route: 048
     Dates: start: 19941229, end: 19950124
  8. SAROTEN [Concomitant]
     Active Substance: AMITRIPTYLINE
     Indication: DEPRESSION
     Dosage: UNK;
     Route: 048
     Dates: start: 19950124, end: 19950331
  9. SODIUM CITRATE. [Concomitant]
     Active Substance: SODIUM CITRATE
     Indication: METABOLIC ACIDOSIS
     Dosage: 4 DF, QD
     Route: 048
     Dates: start: 19950119, end: 19950131
  10. IMUREK [Suspect]
     Active Substance: AZATHIOPRINE
     Indication: SCLERODERMA
     Dosage: UNK
     Route: 048
     Dates: start: 19950113, end: 19950116
  11. METALCAPTASE [Suspect]
     Active Substance: PENICILLAMINE
     Indication: SCLERODERMA
     Route: 048
     Dates: start: 19941229, end: 19950124
  12. TRENTAL [Suspect]
     Active Substance: PENTOXIFYLLINE
     Indication: CARDIOVASCULAR DISORDER
     Dosage: 1200 MG, QD
     Route: 048
     Dates: start: 19950117, end: 19950124
  13. NOVALGIN (METAMIZOLE SODIUM) [Suspect]
     Active Substance: METAMIZOLE SODIUM
     Indication: PYREXIA
     Dosage: UNK
     Route: 042
     Dates: start: 19941228, end: 19941228
  14. URBASON [METHYLPREDNISOLONE] [Concomitant]
     Active Substance: METHYLPREDNISOLONE
     Indication: SCLERODERMA
     Route: 048
     Dates: end: 19950331
  15. ARELIX [Concomitant]
     Active Substance: PIRETANIDE
     Indication: HYPERTENSION
     Dosage: 1 DF, QD
     Route: 048
     Dates: start: 19941228, end: 19941228
  16. PASPERTIN [METOCLOPRAMIDE HYDROCHLORIDE] [Concomitant]
     Active Substance: METOCLOPRAMIDE HYDROCHLORIDE
     Indication: NAUSEA
     Route: 048
     Dates: start: 19941228, end: 19941228
  17. ANTRA [Concomitant]
     Active Substance: OMEPRAZOLE
     Indication: ULCER
     Dosage: 2 DF, QD
     Route: 048
     Dates: start: 19950118, end: 19950124
  18. MONO EMBOLEX [Concomitant]
     Active Substance: CERTOPARIN SODIUM
     Indication: THROMBOSIS PROPHYLAXIS
     Dosage: 1 DF, QD
     Route: 058
     Dates: end: 19950331
  19. FLUIMUCIL [Suspect]
     Active Substance: ACETYLCYSTEINE
     Indication: COUGH
     Dosage: 3 DF, QD
     Route: 048
     Dates: start: 19950117, end: 19950118
  20. TAVEGIL [Concomitant]
     Active Substance: CLEMASTINE FUMARATE
     Indication: HYPERSENSITIVITY
     Dosage: UNK;
     Route: 042
     Dates: start: 19950117, end: 19950117
  21. TEMGESIC [Concomitant]
     Active Substance: BUPRENORPHINE HYDROCHLORIDE
     Indication: PAIN
     Dosage: UNK;
     Route: 060
     Dates: start: 19950124, end: 19950124
  22. IMODIUM [Concomitant]
     Active Substance: LOPERAMIDE HYDROCHLORIDE
     Indication: DIARRHOEA
     Dosage: UNK
     Route: 048
     Dates: start: 19950118, end: 19950119
  23. ASPIRIN TABLET [Suspect]
     Active Substance: ASPIRIN
     Indication: ARRHYTHMIA
     Dosage: 1 DF, QD
     Route: 048
     Dates: end: 19950331
  24. FLUIMUCIL [Suspect]
     Active Substance: ACETYLCYSTEINE
     Indication: COUGH
     Dosage: DAILY DOSE 3 DF
     Route: 048
     Dates: start: 19950120, end: 19950331
  25. ERYPO (ERYTHROPOETIN HUMAN) [Suspect]
     Active Substance: ERYTHROPOIETIN
     Indication: ANAEMIA
     Dosage: DAILY DOSE 2000 IU
     Route: 058
     Dates: start: 19950103, end: 19950103
  26. BISACODYL. [Suspect]
     Active Substance: BISACODYL
     Indication: CONSTIPATION
     Route: 054
     Dates: start: 19950115, end: 19950115
  27. PLACEBO [Suspect]
     Active Substance: UNSPECIFIED INGREDIENT
     Indication: PRODUCT USED FOR UNKNOWN INDICATION
     Dosage: UNK
     Route: 048
     Dates: start: 19950115, end: 19950115
  28. DIFLUCAN [Concomitant]
     Active Substance: FLUCONAZOLE
     Indication: FUNGAL INFECTION
     Dosage: 200 MG, QD
     Route: 048
     Dates: start: 19950120, end: 19950124
  29. SAROTEN [Concomitant]
     Active Substance: AMITRIPTYLINE
     Indication: DEPRESSION
     Dosage: UNK;
     Route: 048
  30. SODIUM BICARBONATE. [Concomitant]
     Active Substance: SODIUM BICARBONATE
     Indication: ACIDOSIS
     Dosage: UNK
     Route: 042
     Dates: start: 19950118, end: 19950118
  31. XANEF [ENALAPRIL MALEATE] [Suspect]
     Active Substance: ENALAPRIL MALEATE
     Indication: HYPERTENSION
     Dosage: UNK
  32. ERYPO (ERYTHROPOETIN HUMAN) [Suspect]
     Active Substance: ERYTHROPOIETIN
     Indication: ANAEMIA
     Dosage: DAILY DOSE 2000 IU
     Route: 058
     Dates: start: 19950107, end: 19950107
  33. ERYPO (ERYTHROPOETIN HUMAN) [Suspect]
     Active Substance: ERYTHROPOIETIN
     Indication: ANAEMIA
     Dosage: DAILY DOSE 2000 IU
     Route: 058
     Dates: start: 19950105, end: 19950105
  34. LASIX [Suspect]
     Active Substance: FUROSEMIDE
     Indication: RENAL FAILURE
     Dosage: 1 DF, QD
     Route: 048
     Dates: start: 19950113, end: 19950331
  35. IMUREK [Suspect]
     Active Substance: AZATHIOPRINE
     Indication: SCLERODERMA
     Dosage: UNK
     Route: 048
     Dates: start: 19950119, end: 19950119
  36. SOLU-DECORTIN-H [Concomitant]
     Active Substance: PREDNISOLONE SODIUM SUCCINATE
     Indication: HYPERSENSITIVITY
     Dosage: UNK;
     Route: 042
     Dates: start: 19950117, end: 19950117
  37. ZANTAC [Concomitant]
     Active Substance: RANITIDINE HYDROCHLORIDE
     Indication: HYPERSENSITIVITY
     Dosage: UNK;
     Route: 042
     Dates: start: 19950117, end: 19950117
  38. ACETOLYT [CALCIUM CITRATE,SODIUM CITRATE] [Concomitant]
     Indication: METABOLIC ACIDOSIS
     Dosage: DAILY DOSE 4 DF
     Route: 048
     Dates: start: 19950119, end: 19950331
  39. CALCIUM CITRATE [Concomitant]
     Active Substance: CALCIUM CITRATE
     Indication: METABOLIC ACIDOSIS
     Dosage: 4 DF, QD
     Route: 048
     Dates: start: 19950119, end: 19950331
  40. ERYPO (ERYTHROPOETIN HUMAN) [Suspect]
     Active Substance: ERYTHROPOIETIN
     Indication: ANAEMIA
     Dosage: DAILY DOSE 2000 IU
     Route: 058
     Dates: start: 19950117, end: 19950117
  41. PURSENNIDE (SENNA ALEXANDRINA LEAF) [Suspect]
     Active Substance: SENNA LEAF
     Indication: CONSTIPATION
     Route: 048
     Dates: start: 19950113, end: 19950114
  42. TELEBRIX [IOXITALAMATE MEGLUMINE,IOXITALAMATE MONOETHANOLAMINE] [Suspect]
     Active Substance: IOXITALAMATE MONOETHANOLAMINE\MEGLUMINE IOXITHALAMATE
     Indication: X-RAY
     Dosage: UNK;
     Route: 048
     Dates: start: 19950115, end: 19950115
  43. MONO-EMBOLEX [HEPARIN-FRACTION, SODIUM SALT] [Concomitant]
     Active Substance: CERTOPARIN SODIUM
     Indication: THROMBOSIS PROPHYLAXIS
     Dosage: 1 DF, QD
     Route: 058
     Dates: end: 19950331
  44. PEPDUL [Concomitant]
     Indication: ULCER
     Dosage: 1 DF, QD
     Route: 048
     Dates: end: 19950117
  45. TRAMAL [Concomitant]
     Active Substance: TRAMADOL
     Indication: PAIN
     Dosage: UNK;
     Route: 048
     Dates: start: 19950118, end: 19950121
  46. ERYTHROCIN [Concomitant]
     Active Substance: ERYTHROMYCIN LACTOBIONATE
     Indication: INFECTION
     Dosage: DAILY DOSE 2 DF
     Route: 042
     Dates: start: 19950118, end: 19950118
  47. SAROTEN [Concomitant]
     Active Substance: AMITRIPTYLINE
     Indication: DEPRESSION
     Dosage: UNK;
     Route: 048
  48. URBASON [Concomitant]
     Active Substance: METHYLPREDNISOLONE
     Indication: SCLERODERMA
     Dosage: UNK
     Route: 048
  49. SODIUM CHLORIDE. [Concomitant]
     Active Substance: SODIUM CHLORIDE
     Indication: HYPONATRAEMIA
     Dosage: UNK
     Route: 042
     Dates: start: 19950117, end: 19950117
  50. REMESTAN [Suspect]
     Active Substance: TEMAZEPAM
     Indication: SLEEP DISORDER
     Dosage: 1 DF, QD
     Route: 048
     Dates: end: 19950113
  51. TAZOBAC [PIPERACILLIN SODIUM,TAZOBACTAM SODIUM] [Suspect]
     Active Substance: PIPERACILLIN SODIUM\TAZOBACTAM SODIUM
     Indication: INFECTION
     Dosage: 2 DF, QD
     Route: 042
     Dates: end: 19950101
  52. XANEF [ENALAPRIL MALEATE] [Suspect]
     Active Substance: ENALAPRIL MALEATE
     Indication: HYPERTENSION
     Dosage: DAILY DOSE 1 DF
     Route: 048
     Dates: start: 19941230, end: 19950124
  53. AUGMENTAN [Suspect]
     Active Substance: AMOXICILLIN\CLAVULANATE POTASSIUM
     Indication: INFECTION
     Dosage: 3 DF, QD
     Route: 048
     Dates: start: 19950117, end: 19950117
  54. ADALAT [Concomitant]
     Active Substance: NIFEDIPINE
     Indication: HYPERTENSION
     Dosage: 1 DF, QD
     Route: 048
     Dates: start: 19941228, end: 19941228
  55. IMODIUM [Concomitant]
     Active Substance: LOPERAMIDE HYDROCHLORIDE
     Indication: DIARRHOEA
     Route: 048
     Dates: start: 19950118, end: 19950119
  56. NATRIUMHYDROGENCARBONAT [Concomitant]
     Active Substance: SODIUM BICARBONATE
     Indication: ACIDOSIS
     Route: 042
     Dates: start: 19950118, end: 19950118
  57. NEUPOGEN [Concomitant]
     Active Substance: FILGRASTIM
     Indication: LEUKOPENIA
     Dosage: UNK
     Route: 058
     Dates: start: 19950124, end: 19950124
  58. PASPERTIN [Concomitant]
     Indication: NAUSEA
     Dosage: UNK;
     Route: 048
     Dates: start: 19941228, end: 19941228

REACTIONS (15)
  - Lymphocytosis [Unknown]
  - Blood urea increased [Unknown]
  - Pneumonia [Unknown]
  - Blood creatinine increased [Unknown]
  - Renal failure [Fatal]
  - Off label use [Fatal]
  - Leukocytosis [Unknown]
  - Rash [Unknown]
  - Blister [Unknown]
  - Renal failure [Unknown]
  - Brain injury [Fatal]
  - Stevens-Johnson syndrome [Unknown]
  - Blood lactate dehydrogenase increased [Unknown]
  - Pruritus [Unknown]
  - Toxic epidermal necrolysis [Fatal]

NARRATIVE: CASE EVENT DATE: 19950117
